FAERS Safety Report 6591206-4 (Version None)
Quarter: 2010Q1

REPORT INFORMATION
  Report Type: 
  Country: None (occurrence: None)
  Receive Date: 20100219
  Receipt Date: 20100208
  Transmission Date: 20100710
  Serious: Yes (Other)
  Sender: FDA-Public Use
  Company Number: PHEH2008US02671

PATIENT
  Sex: Male

DRUGS (15)
  1. ZOMETA [Suspect]
     Indication: PROSTATE CANCER
     Dosage: UNK
     Dates: start: 20020601
  2. CHEMOTHERAPEUTICS NOS [Concomitant]
  3. DEXAMETHASONE [Concomitant]
  4. RADIATION THERAPY [Concomitant]
     Indication: ASTHENIA
     Dosage: UNK
     Dates: start: 20020101
  5. RADIATION THERAPY [Concomitant]
     Indication: HYPOAESTHESIA
  6. FLOMAX [Concomitant]
  7. LOTREL [Concomitant]
  8. ZOLADEX [Concomitant]
  9. PAXIL [Concomitant]
  10. DYAZIDE [Concomitant]
  11. EMCYT [Concomitant]
     Dosage: 140 MG CAPSULES TWICE DAILY
  12. CRESTOR [Concomitant]
     Dosage: 10 MG TABLETS DAILY
  13. LORAZEPAM [Concomitant]
     Dosage: 1 MG, 2 TABLETS AS NEEDED
  14. TRIAMTERENE AND HYDROCHLOROTHIAZID ^HARRIS^ [Concomitant]
     Dosage: 3 TIMES DILY
  15. ATIVAN [Concomitant]
     Dosage: 2 MG TABLETS, 1-2 DAILY

REACTIONS (15)
  - ANXIETY [None]
  - BONE DISORDER [None]
  - BONE OPERATION [None]
  - CERVICOBRACHIAL SYNDROME [None]
  - CHEST PAIN [None]
  - DECREASED INTEREST [None]
  - DEPRESSION [None]
  - GYNAECOMASTIA [None]
  - IMPAIRED HEALING [None]
  - INFECTION [None]
  - INJURY [None]
  - NUTRITIONAL CONDITION ABNORMAL [None]
  - OSTEONECROSIS [None]
  - PAIN [None]
  - TOOTH EXTRACTION [None]
